FAERS Safety Report 12827799 (Version 2)
Quarter: 2016Q4

REPORT INFORMATION
  Report Type: Spontaneous
  Country: US (occurrence: US)
  Receive Date: 20161006
  Receipt Date: 20161024
  Transmission Date: 20170207
  Serious: Yes (Hospitalization, Other)
  Sender: FDA-Public Use
  Company Number: US-BEH-2016073873

PATIENT
  Sex: Female
  Weight: 46.26 kg

DRUGS (18)
  1. EPIPEN [Concomitant]
     Active Substance: EPINEPHRINE
  2. PHENERGAN [Concomitant]
     Active Substance: PROMETHAZINE HYDROCHLORIDE
  3. NORMAL SALINE [Concomitant]
     Active Substance: SODIUM CHLORIDE
  4. NORCO [Concomitant]
     Active Substance: ACETAMINOPHEN\HYDROCODONE BITARTRATE
  5. PROAIR HFA [Concomitant]
     Active Substance: ALBUTEROL SULFATE
  6. BERINERT [Suspect]
     Active Substance: HUMAN C1-ESTERASE INHIBITOR
     Indication: PROPHYLAXIS
     Dosage: 1000 IU, PRN
     Route: 042
     Dates: start: 20150324
  7. DIPHENHYDRAMINE. [Concomitant]
     Active Substance: DIPHENHYDRAMINE
  8. HEPARIN [Concomitant]
     Active Substance: HEPARIN SODIUM
  9. FIXMYSKIN HEALING BALM VANILLA FRAGRANCE [Concomitant]
     Active Substance: HYDROCORTISONE
  10. LEVAQUIN [Concomitant]
     Active Substance: LEVOFLOXACIN
  11. BERINERT [Suspect]
     Active Substance: HUMAN C1-ESTERASE INHIBITOR
     Indication: HEREDITARY ANGIOEDEMA
     Dosage: 1000 IU, QOD AS NEEDED
     Route: 042
     Dates: start: 20150324
  12. SYMBICORT [Concomitant]
     Active Substance: BUDESONIDE\FORMOTEROL FUMARATE DIHYDRATE
  13. SOLU-MEDROL [Concomitant]
     Active Substance: METHYLPREDNISOLONE SODIUM SUCCINATE
  14. ALBUTEROL                          /00139501/ [Concomitant]
     Active Substance: ALBUTEROL
  15. FLUDROCORTISONE [Concomitant]
     Active Substance: FLUDROCORTISONE
  16. ZOFRAN [Concomitant]
     Active Substance: ONDANSETRON HYDROCHLORIDE
  17. NEXIUM [Concomitant]
     Active Substance: ESOMEPRAZOLE MAGNESIUM
  18. TRANEXAMIC [Concomitant]

REACTIONS (3)
  - Sinus operation [Unknown]
  - Hereditary angioedema [Unknown]
  - Wisdom teeth removal [Unknown]
